FAERS Safety Report 7260967-3 (Version None)
Quarter: 2011Q1

REPORT INFORMATION
  Report Type: 
  Country: None (occurrence: None)
  Receive Date: 20110130
  Receipt Date: 20101227
  Transmission Date: 20110831
  Serious: No
  Sender: FDA-Public Use
  Company Number: US-ABBOTT-10P-163-0694021-00

PATIENT
  Sex: Female
  Weight: 86.26 kg

DRUGS (4)
  1. HUMIRA [Suspect]
     Indication: ANKYLOSING SPONDYLITIS
     Dosage: LOT NUMBER + EXPIRATION WERE UNAVAILABLE.
     Route: 058
     Dates: start: 20100118, end: 20100301
  2. FLEXERIL [Concomitant]
     Indication: ANKYLOSING SPONDYLITIS
  3. UNKNOWN PAIN MEDICATIONS [Concomitant]
     Indication: PAIN MANAGEMENT
  4. UNKNOWN OTHER MEDICATIONS [Concomitant]
     Indication: PRODUCT USED FOR UNKNOWN INDICATION

REACTIONS (4)
  - PAIN [None]
  - NECK PAIN [None]
  - FIBROMYALGIA [None]
  - MUSCULOSKELETAL PAIN [None]
